FAERS Safety Report 25365377 (Version 1)
Quarter: 2025Q2

REPORT INFORMATION
  Report Type: Spontaneous
  Country: US (occurrence: US)
  Receive Date: 20250527
  Receipt Date: 20250527
  Transmission Date: 20250716
  Serious: No
  Sender: TAKEDA
  Company Number: US-ABBVIE-6286356

PATIENT

DRUGS (3)
  1. TRINTELLIX [Interacting]
     Active Substance: VORTIOXETINE HYDROBROMIDE
     Indication: Antidepressant therapy
  2. LEXAPRO [Interacting]
     Active Substance: ESCITALOPRAM OXALATE
     Indication: Product used for unknown indication
  3. VRAYLAR [Interacting]
     Active Substance: CARIPRAZINE
     Indication: Product used for unknown indication

REACTIONS (2)
  - Drug interaction [Unknown]
  - Drug ineffective [Unknown]
